FAERS Safety Report 22811750 (Version 4)
Quarter: 2024Q2

REPORT INFORMATION
  Report Type: Report from Study
  Country: US (occurrence: US)
  Receive Date: 20230810
  Receipt Date: 20240531
  Transmission Date: 20240715
  Serious: No
  Sender: FDA-Public Use
  Company Number: US-ACADIA PHARMACEUTICALS INC.-ACA-2023-PIM-002999

PATIENT
  Sex: Male

DRUGS (1)
  1. NUPLAZID [Suspect]
     Active Substance: PIMAVANSERIN TARTRATE
     Indication: Parkinson^s disease psychosis
     Dosage: 34 MILLIGRAM, QD
     Route: 048
     Dates: start: 20230424

REACTIONS (5)
  - Product dose omission issue [Not Recovered/Not Resolved]
  - Ill-defined disorder [Unknown]
  - Abnormal behaviour [Unknown]
  - Hypoacusis [Unknown]
  - Blood urine present [Not Recovered/Not Resolved]
